FAERS Safety Report 5709209-8 (Version None)
Quarter: 2008Q2

REPORT INFORMATION
  Report Type: 
  Country: None (occurrence: None)
  Receive Date: 20080418
  Receipt Date: 20080409
  Transmission Date: 20081010
  Serious: Yes (Other)
  Sender: FDA-Public Use
  Company Number: AT-JNJFOC-20080302577

PATIENT
  Age: 39 Year
  Sex: Female
  Weight: 56 kg

DRUGS (6)
  1. REMICADE [Suspect]
     Route: 042
  2. REMICADE [Suspect]
     Dosage: 2 INFUSIONS
     Route: 042
  3. REMICADE [Suspect]
     Dosage: 3 INFUSIONS
     Route: 042
  4. REMICADE [Suspect]
     Indication: CROHN'S DISEASE
     Dosage: 3 INFUSIONS
     Route: 042
  5. ANAFRANIL [Suspect]
     Indication: PANIC ATTACK
  6. AZATHIOPRINE [Concomitant]
     Indication: CROHN'S DISEASE
     Route: 048

REACTIONS (7)
  - BRONCHOSPASM [None]
  - CONFUSIONAL STATE [None]
  - DYSPNOEA [None]
  - FEELING HOT [None]
  - NAUSEA [None]
  - RASH [None]
  - TACHYCARDIA [None]
